FAERS Safety Report 15965871 (Version 1)
Quarter: 2019Q1

REPORT INFORMATION
  Report Type: Spontaneous
  Country: US (occurrence: US)
  Receive Date: 20190215
  Receipt Date: 20190215
  Transmission Date: 20190418
  Serious: No
  Sender: FDA-Public Use
  Company Number: US-PFIZER INC-2019064265

PATIENT
  Age: 62 Year
  Sex: Male

DRUGS (2)
  1. AMLODIPINE BESILATE [Suspect]
     Active Substance: AMLODIPINE BESYLATE
     Dosage: 10 MG, DAILY (QUANTITY 90 FOR 90 DAY SUPPLY )
  2. NISOLDIPINE. [Suspect]
     Active Substance: NISOLDIPINE
     Dosage: 17 MG, DAILY (QUANTITY 90 FOR 90 DAY SUPPLY)

REACTIONS (1)
  - Drug ineffective [Unknown]
